FAERS Safety Report 19975849 (Version 2)
Quarter: 2021Q4

REPORT INFORMATION
  Report Type: Spontaneous
  Country: US (occurrence: US)
  Receive Date: 20211020
  Receipt Date: 20211102
  Transmission Date: 20220303
  Serious: No
  Sender: FDA-Public Use
  Company Number: US-SA-SAC20211015000879

PATIENT
  Age: 27 Year
  Sex: Male

DRUGS (8)
  1. DUPIXENT [Suspect]
     Active Substance: DUPILUMAB
     Indication: Asthma
     Dosage: 1 DF, 1X
     Route: 058
     Dates: start: 20211004, end: 20211004
  2. DUPIXENT [Suspect]
     Active Substance: DUPILUMAB
     Indication: Angioedema
     Dosage: 300 MG, QOW
     Route: 058
     Dates: start: 20211007
  3. DUPIXENT [Suspect]
     Active Substance: DUPILUMAB
     Indication: Secondary hypertension
  4. TOCOVID [Concomitant]
  5. DILTIAZEM [Concomitant]
     Active Substance: DILTIAZEM
  6. ALBUTEROL SULFATE [Concomitant]
     Active Substance: ALBUTEROL SULFATE
     Indication: Asthma
  7. STIOLTO RESPIMAT [Concomitant]
     Active Substance: OLODATEROL HYDROCHLORIDE\TIOTROPIUM BROMIDE MONOHYDRATE
  8. SYMBICORT [Concomitant]
     Active Substance: BUDESONIDE\FORMOTEROL FUMARATE DIHYDRATE
     Indication: Asthma

REACTIONS (6)
  - Chest discomfort [Unknown]
  - Confusional state [Unknown]
  - Dry eye [Unknown]
  - Ocular discomfort [Unknown]
  - Product use in unapproved indication [Unknown]
  - Incorrect dose administered [Unknown]

NARRATIVE: CASE EVENT DATE: 20211001
